FAERS Safety Report 9052916 (Version 1)
Quarter: 2013Q1

REPORT INFORMATION
  Report Type: Spontaneous
  Country: BR (occurrence: BR)
  Receive Date: 20130207
  Receipt Date: 20130207
  Transmission Date: 20140127
  Serious: Yes (Hospitalization, Other)
  Sender: FDA-Public Use
  Company Number: PHHY2012BR073193

PATIENT
  Sex: Female

DRUGS (8)
  1. DIOVAN AMLO FIX [Suspect]
     Indication: HYPERTENSION
     Dosage: 1 DF (1 (VALSARTAN320MG AND AMLODIPINE BESYLATE 10MG) IN THE MORNING
     Route: 048
     Dates: start: 2007
  2. DIOVAN AMLO FIX [Suspect]
     Dosage: 1 DF (1 (VALSARTAN320MG AND AMLODIPINE BESYLATE 5MG) A DAY
     Route: 048
     Dates: start: 2007
  3. METFORMIN [Suspect]
     Indication: DIABETES MELLITUS
     Dosage: UNK 5 TIMES A DAY
     Dates: start: 2007
  4. DIOVAN [Suspect]
     Indication: HYPERTENSION
     Dosage: 80 MG, A DAY
     Route: 048
  5. DIOVAN [Suspect]
     Dosage: 160 MG, A DAY
     Route: 048
  6. OMEPRAZOLE [Concomitant]
     Indication: GASTROINTESTINAL DISORDER
     Dosage: 20 MG, A DAY
     Route: 048
  7. EXODUS [Concomitant]
     Indication: ANXIETY
     Dosage: 1 DF, A DAY
     Route: 048
  8. CALCIUM W/VITAMIN D NOS [Concomitant]
     Indication: BONE DISORDER
     Dosage: 1 DF, A DAY
     Route: 048

REACTIONS (5)
  - Diabetes mellitus inadequate control [Recovering/Resolving]
  - Thyroid disorder [Recovering/Resolving]
  - Urinary tract infection [Recovered/Resolved]
  - Emotional disorder [Recovered/Resolved]
  - Disorientation [Recovered/Resolved]
